FAERS Safety Report 18358994 (Version 1)
Quarter: 2020Q4

REPORT INFORMATION
  Report Type: Spontaneous
  Country: US (occurrence: US)
  Receive Date: 20201007
  Receipt Date: 20201007
  Transmission Date: 20210114
  Serious: Yes (Death)
  Sender: FDA-Public Use
  Company Number: None

PATIENT
  Age: 73 Year
  Sex: Male

DRUGS (18)
  1. OMEGA 3 [Concomitant]
     Active Substance: OMEGA-3 FATTY ACIDS
     Dates: start: 20061016
  2. TOPROL XL [Concomitant]
     Active Substance: METOPROLOL SUCCINATE
     Dates: start: 20061016
  3. PREVACID [Concomitant]
     Active Substance: LANSOPRAZOLE
     Dates: start: 20061016
  4. VITAMIN C [Concomitant]
     Active Substance: ASCORBIC ACID
     Dates: start: 20061016
  5. GARLIC. [Concomitant]
     Active Substance: GARLIC
     Dates: start: 20061016
  6. CALCIUM [Concomitant]
     Active Substance: CALCIUM
     Dates: start: 20061016
  7. ACCUPRIL [Concomitant]
     Active Substance: QUINAPRIL HYDROCHLORIDE
     Dates: start: 20061016
  8. ZOCOR [Concomitant]
     Active Substance: SIMVASTATIN
     Dates: start: 20061016
  9. TACROLIMUS. [Suspect]
     Active Substance: TACROLIMUS
     Route: 048
     Dates: start: 20200601, end: 20200905
  10. MULTI VIT [Concomitant]
     Active Substance: VITAMINS
     Dates: start: 20061016
  11. ASPIRIN. [Concomitant]
     Active Substance: ASPIRIN
     Dates: start: 20061016
  12. TACROLIMUS. [Suspect]
     Active Substance: TACROLIMUS
     Route: 048
     Dates: start: 20180928, end: 20200905
  13. PRADAXA [Concomitant]
     Active Substance: DABIGATRAN ETEXILATE MESYLATE
     Dates: start: 20061016
  14. TOPROL XL 25MG [Concomitant]
     Dates: start: 20061016
  15. ANDROGEL [Concomitant]
     Active Substance: TESTOSTERONE
     Dates: start: 20061016
  16. FLOMAX [Concomitant]
     Active Substance: TAMSULOSIN HYDROCHLORIDE
     Dates: start: 20061016
  17. COD LIVER [Concomitant]
     Active Substance: COD LIVER OIL
     Dates: start: 20061016
  18. CARAFATE [Concomitant]
     Active Substance: SUCRALFATE

REACTIONS (1)
  - Death [None]

NARRATIVE: CASE EVENT DATE: 20201006
